FAERS Safety Report 6557831-1 (Version None)
Quarter: 2010Q1

REPORT INFORMATION
  Report Type: 
  Country: None (occurrence: None)
  Receive Date: 20100129
  Receipt Date: 20091102
  Transmission Date: 20100710
  Serious: No
  Sender: FDA-Public Use
  Company Number: US-BAUSCH-2009BL005515

PATIENT
  Age: 20 Year
  Sex: Male

DRUGS (3)
  1. NEOMYCIN AND POLYMXIN B SULFATES AND HYDROCORTISONE [Suspect]
     Indication: EAR INFECTION
     Route: 048
     Dates: start: 20091101, end: 20091101
  2. CEPHALEXIN [Concomitant]
     Indication: EAR INFECTION
     Route: 048
     Dates: start: 20091030
  3. PROPOXYPHENE [Concomitant]
     Indication: PAIN
     Route: 048
     Dates: start: 20091030

REACTIONS (2)
  - ACCIDENTAL EXPOSURE [None]
  - CHAPPED LIPS [None]
